FAERS Safety Report 12957745 (Version 1)
Quarter: 2016Q4

REPORT INFORMATION
  Report Type: Spontaneous
  Country: BR (occurrence: BR)
  Receive Date: 20161118
  Receipt Date: 20161118
  Transmission Date: 20170207
  Serious: Yes (Other)
  Sender: FDA-Public Use
  Company Number: PHHY2016BR156418

PATIENT
  Sex: Female
  Weight: 56 kg

DRUGS (1)
  1. ESTALIS [Suspect]
     Active Substance: ESTRADIOL\NORETHINDRONE ACETATE
     Indication: HORMONE THERAPY
     Dosage: 8 DF, (PATCHES) (50 ESTRA/140 MCG NORETHISTERONE ACETATE, ON MINDAY AND THURSDAY
     Route: 062

REACTIONS (5)
  - Palpitations [Recovered/Resolved]
  - Depression [Recovered/Resolved]
  - Prescription drug used without a prescription [Recovered/Resolved]
  - Blood pressure increased [Recovered/Resolved]
  - Malaise [Recovered/Resolved]
